FAERS Safety Report 9543851 (Version 2)
Quarter: 2014Q1

REPORT INFORMATION
  Report Type: Spontaneous
  Country: US (occurrence: None)
  Receive Date: 20130524
  Receipt Date: 20130724
  Transmission Date: 20141002
  Serious: No
  Sender: FDA-Public Use
  Company Number: PHEH2013US004549

PATIENT
  Age: 35 Year
  Sex: Female

DRUGS (8)
  1. GILENYA [Suspect]
     Indication: MULTIPLE SCLEROSIS
     Route: 048
     Dates: start: 20130220
  2. CITALOPRAM HYDROBROMIDE [Concomitant]
  3. ERGOCALCIFEROL [Concomitant]
  4. AMANTADINE [Concomitant]
  5. NAPROXEN [Concomitant]
  6. XANAX XR [Concomitant]
  7. SONATA (ZALEPLON) [Concomitant]
  8. DIAZEPAM [Concomitant]

REACTIONS (1)
  - Somnolence [None]
